FAERS Safety Report 7218883-9 (Version None)
Quarter: 2011Q1

REPORT INFORMATION
  Report Type: 
  Country: None (occurrence: None)
  Receive Date: 20110110
  Receipt Date: 20110104
  Transmission Date: 20110831
  Serious: Yes (Hospitalization)
  Sender: FDA-Public Use
  Company Number: ES-B.I. PHARMACEUTICALS,INC./RIDGEFIELD-2010-DE-03415GD

PATIENT
  Age: 68 Year
  Sex: Female

DRUGS (3)
  1. AMANTADINE [Suspect]
     Indication: PARKINSON'S DISEASE
  2. LEVODOPA/CARBIDOPA/ENTACAPONE [Suspect]
     Indication: PARKINSON'S DISEASE
  3. PRAMIPEXOLE [Suspect]
     Indication: PARKINSON'S DISEASE

REACTIONS (6)
  - DYSKINESIA [None]
  - CONFUSIONAL STATE [None]
  - HALLUCINATIONS, MIXED [None]
  - HYPERPYREXIA [None]
  - SOMNOLENCE [None]
  - RHABDOMYOLYSIS [None]
